FAERS Safety Report 20865032 (Version 3)
Quarter: 2022Q2

REPORT INFORMATION
  Report Type: Spontaneous
  Country: US (occurrence: US)
  Receive Date: 20220524
  Receipt Date: 20220620
  Transmission Date: 20220721
  Serious: Yes (Hospitalization)
  Sender: FDA-Public Use
  Company Number: US-BIOCODEX2-2022000436

PATIENT

DRUGS (18)
  1. DIACOMIT [Suspect]
     Active Substance: STIRIPENTOL
     Indication: Epilepsy
     Dosage: 250MG SACHET,1 PACKET DISSOLVED IN 10 ML OF WATER. GIVE 5 ML BY MOUTH TWICE A DAY FOR 1 WEEK THEN 10
     Route: 048
     Dates: start: 20220315
  2. DIACOMIT [Suspect]
     Active Substance: STIRIPENTOL
     Dosage: 250MG SACHET,1 PACKET DISSOLVED IN 10 ML OF WATER. GIVE 5 ML BY MOUTH TWICE A DAY FOR 1 WEEK THEN 10
     Route: 048
  3. DIACOMIT [Suspect]
     Active Substance: STIRIPENTOL
     Dosage: 250MG SACHET,1 PACKET DISSOLVED IN 10 ML OF WATER. GIVE 5 ML BY MOUTH TWICE A DAY FOR 1 WEEK THEN 10
     Route: 048
  4. DIACOMIT [Suspect]
     Active Substance: STIRIPENTOL
     Dosage: 500MG THREE TIMES A DAY
     Route: 065
  5. ONFI [Concomitant]
     Active Substance: CLOBAZAM
     Indication: Product used for unknown indication
  6. ACETAMINOPHEN [Concomitant]
     Active Substance: ACETAMINOPHEN
     Indication: Product used for unknown indication
  7. ALBUTEROL SULFATE [Concomitant]
     Active Substance: ALBUTEROL SULFATE
     Indication: Product used for unknown indication
  8. APREPITANT [Concomitant]
     Active Substance: APREPITANT
     Indication: Product used for unknown indication
  9. CALCIUM CARBONATE [Concomitant]
     Indication: Product used for unknown indication
  10. CUVPOSA [Concomitant]
     Active Substance: GLYCOPYRROLATE
     Indication: Product used for unknown indication
  11. LORAZEPAM [Concomitant]
     Active Substance: LORAZEPAM
     Indication: Product used for unknown indication
  12. MIDAZOLAM [Concomitant]
     Active Substance: MIDAZOLAM
     Indication: Product used for unknown indication
  13. MIRALAX [Concomitant]
     Active Substance: POLYETHYLENE GLYCOL 3350
     Indication: Product used for unknown indication
  14. OMEPRAZOLE [Concomitant]
     Active Substance: OMEPRAZOLE
     Indication: Product used for unknown indication
     Dosage: UNK
  15. PHENEGRAN [Concomitant]
     Indication: Product used for unknown indication
  16. POTASSIUM CITRATE [Concomitant]
     Active Substance: POTASSIUM CITRATE
     Indication: Product used for unknown indication
  17. TOPIRAMATE [Concomitant]
     Active Substance: TOPIRAMATE
     Indication: Product used for unknown indication
  18. TRIACETIN [Concomitant]
     Active Substance: TRIACETIN
     Indication: Product used for unknown indication

REACTIONS (2)
  - Seizure [Unknown]
  - Vomiting [Unknown]

NARRATIVE: CASE EVENT DATE: 20220315
